FAERS Safety Report 5508185-0 (Version None)
Quarter: 2007Q4

REPORT INFORMATION
  Report Type: 
  Country: None (occurrence: None)
  Receive Date: 20071106
  Receipt Date: 20071025
  Transmission Date: 20080405
  Serious: Yes (Other)
  Sender: FDA-Public Use
  Company Number: US-ELI_LILLY_AND_COMPANY-US200710006676

PATIENT
  Sex: Female

DRUGS (3)
  1. CYMBALTA [Suspect]
     Indication: DEPRESSION
     Dosage: 30 MG, UNK
     Dates: start: 20071001
  2. CYMBALTA [Suspect]
     Dosage: 60 MG, UNK
     Dates: end: 20071001
  3. ORAL CONTRACEPTIVE NOS [Concomitant]
     Dosage: 1 D/F, UNK

REACTIONS (6)
  - BURNING SENSATION [None]
  - DEPRESSION [None]
  - INTENTIONAL SELF-INJURY [None]
  - LOSS OF CONSCIOUSNESS [None]
  - SUICIDAL IDEATION [None]
  - SUICIDE ATTEMPT [None]
